FAERS Safety Report 12436811 (Version 4)
Quarter: 2016Q2

REPORT INFORMATION
  Report Type: Spontaneous
  Country: IT (occurrence: IT)
  Receive Date: 20160606
  Receipt Date: 20160627
  Transmission Date: 20160815
  Serious: Yes (Disabling, Other)
  Sender: FDA-Public Use
  Company Number: IT-TEVA-664790ACC

PATIENT
  Age: 61 Year
  Sex: Male

DRUGS (6)
  1. MIRTAZAPINE. [Suspect]
     Active Substance: MIRTAZAPINE
     Indication: HYPOMANIA
     Dosage: 200 MILLIGRAM DAILY; 200 MG, QD
     Route: 065
  2. MIRTAZAPINE. [Suspect]
     Active Substance: MIRTAZAPINE
     Dosage: 50 MILLIGRAM DAILY; 50 MG, QD
     Route: 065
     Dates: start: 201409
  3. SERTRALINE [Suspect]
     Active Substance: SERTRALINE HYDROCHLORIDE
     Indication: DEPRESSION
     Dosage: 50 MILLIGRAM DAILY; 50 MG, QD
     Route: 065
  4. SERTRALINE [Suspect]
     Active Substance: SERTRALINE HYDROCHLORIDE
     Indication: HYPOMANIA
     Dosage: 200 MILLIGRAM DAILY; 200 MG, QD
     Route: 065
  5. SERTRALINE [Suspect]
     Active Substance: SERTRALINE HYDROCHLORIDE
     Dosage: 50 MILLIGRAM DAILY; 50 MG, QD
     Route: 065
     Dates: start: 201409
  6. MIRTAZAPINE. [Suspect]
     Active Substance: MIRTAZAPINE
     Indication: DEPRESSION
     Dosage: 50 MILLIGRAM DAILY; 50 MG, QD
     Route: 065

REACTIONS (3)
  - Tremor [Recovered/Resolved]
  - Dyskinesia [Recovered/Resolved]
  - Dysgraphia [Recovered/Resolved]
